FAERS Safety Report 12949967 (Version 1)
Quarter: 2016Q4

REPORT INFORMATION
  Report Type: Spontaneous
  Country: US (occurrence: US)
  Receive Date: 20161116
  Receipt Date: 20161116
  Transmission Date: 20170207
  Serious: Yes (Hospitalization, Other)
  Sender: FDA-Public Use
  Company Number: None

PATIENT
  Age: 8 Month
  Sex: Female
  Weight: 58.5 kg

DRUGS (3)
  1. BOTOX [Suspect]
     Active Substance: ONABOTULINUMTOXINA
     Indication: SKIN WRINKLING
     Dosage: ?          QUANTITY:45 UNITS;?
     Route: 030
  2. VALIUM [Concomitant]
     Active Substance: DIAZEPAM
  3. ZOFRAN [Concomitant]
     Active Substance: ONDANSETRON HYDROCHLORIDE

REACTIONS (11)
  - Malaise [None]
  - Dyskinesia [None]
  - Drug ineffective [None]
  - Restlessness [None]
  - Fear [None]
  - Nausea [None]
  - Anxiety [None]
  - Vision blurred [None]
  - Insomnia [None]
  - Decreased appetite [None]
  - Tremor [None]

NARRATIVE: CASE EVENT DATE: 20161103
